FAERS Safety Report 7510683-5 (Version None)
Quarter: 2011Q2

REPORT INFORMATION
  Report Type: 
  Country: None (occurrence: None)
  Receive Date: 20110530
  Receipt Date: 20110518
  Transmission Date: 20111010
  Serious: Yes (Other)
  Sender: FDA-Public Use
  Company Number: CA-BRISTOL-MYERS SQUIBB COMPANY-15762925

PATIENT
  Age: 49 Year
  Sex: Female

DRUGS (2)
  1. AVAPRO [Suspect]
     Indication: HYPERTENSION
     Route: 048
     Dates: start: 20100501
  2. HYDROCHLOROTHIAZIDE [Concomitant]
     Dates: start: 20090101

REACTIONS (1)
  - T-CELL LYMPHOMA [None]
